FAERS Safety Report 7635194-8 (Version None)
Quarter: 2011Q3

REPORT INFORMATION
  Report Type: 
  Country: None (occurrence: None)
  Receive Date: 20110726
  Receipt Date: 20110725
  Transmission Date: 20111222
  Serious: Yes (Life-Threatening, Other)
  Sender: FDA-Public Use
  Company Number: JP-BRISTOL-MYERS SQUIBB COMPANY-15901564

PATIENT
  Age: 81 Year
  Sex: Female
  Weight: 55 kg

DRUGS (4)
  1. ETOPOSIDE [Suspect]
     Indication: LYMPHOMA
     Route: 041
     Dates: start: 20110531
  2. IFOSFAMIDE [Suspect]
     Indication: LYMPHOMA
     Route: 041
     Dates: start: 20110531
  3. EMEND [Concomitant]
     Indication: ANTIEMETIC SUPPORTIVE CARE
     Route: 048
     Dates: start: 20110531
  4. PARAPLATIN [Suspect]
     Indication: LYMPHOMA
     Route: 041
     Dates: start: 20110531, end: 20110101

REACTIONS (1)
  - ANAPHYLACTIC SHOCK [None]
